FAERS Safety Report 20185449 (Version 1)
Quarter: 2021Q4

REPORT INFORMATION
  Report Type: Spontaneous
  Country: AU (occurrence: AU)
  Receive Date: 20211215
  Receipt Date: 20211215
  Transmission Date: 20220303
  Serious: No
  Sender: FDA-Public Use
  Company Number: AU-LUPIN PHARMACEUTICALS INC.-2021-24567

PATIENT
  Age: 21 Year
  Sex: Male

DRUGS (13)
  1. VANCOMYCIN [Suspect]
     Active Substance: VANCOMYCIN
     Indication: Autism spectrum disorder
     Dosage: 250 MILLIGRAM(MORNING)
     Route: 065
  2. VANCOMYCIN [Suspect]
     Active Substance: VANCOMYCIN
     Indication: Abdominal pain
     Dosage: 500 MILLIGRAM EVENING
     Route: 065
  3. VANCOMYCIN [Suspect]
     Active Substance: VANCOMYCIN
     Indication: Abdominal discomfort
     Dosage: 250 MILLIGRAM(MORNING)
     Route: 065
  4. VANCOMYCIN [Suspect]
     Active Substance: VANCOMYCIN
     Indication: Defaecation disorder
     Dosage: 500 MILLIGRAM EVENING
     Route: 065
  5. TINIDAZOLE [Suspect]
     Active Substance: TINIDAZOLE
     Indication: Autism spectrum disorder
     Dosage: 500 MILLIGRAM, BID
     Route: 065
  6. TINIDAZOLE [Suspect]
     Active Substance: TINIDAZOLE
     Indication: Abdominal pain
  7. TINIDAZOLE [Suspect]
     Active Substance: TINIDAZOLE
     Indication: Abdominal discomfort
  8. TINIDAZOLE [Suspect]
     Active Substance: TINIDAZOLE
     Indication: Defaecation disorder
  9. RIFAXIMIN [Suspect]
     Active Substance: RIFAXIMIN
     Indication: Autism spectrum disorder
     Dosage: 500 MILLIGRAM, BID FIRST REGIMEN
     Route: 065
  10. RIFAXIMIN [Suspect]
     Active Substance: RIFAXIMIN
     Indication: Abdominal pain
     Dosage: 500 MILLIGRAM, BID FIRST REGIMEN
     Route: 065
  11. RIFAXIMIN [Suspect]
     Active Substance: RIFAXIMIN
     Indication: Functional gastrointestinal disorder
  12. RIFAXIMIN [Suspect]
     Active Substance: RIFAXIMIN
     Indication: Defaecation disorder
  13. SALINE [Concomitant]
     Active Substance: SODIUM CHLORIDE
     Indication: Probiotic therapy
     Dosage: UNK
     Route: 048

REACTIONS (1)
  - Off label use [Unknown]
